FAERS Safety Report 11193456 (Version 1)
Quarter: 2015Q2

REPORT INFORMATION
  Report Type: Spontaneous
  Country: FR (occurrence: FR)
  Receive Date: 20150616
  Receipt Date: 20150616
  Transmission Date: 20150821
  Serious: Yes (Life-Threatening, Hospitalization)
  Sender: FDA-Public Use
  Company Number: FR-ASTRAZENECA-2015SE59233

PATIENT
  Age: 20201 Day
  Sex: Female

DRUGS (11)
  1. CERNEVIT [Concomitant]
     Active Substance: VITAMINS
  2. VITAMIN C [Concomitant]
     Active Substance: ASCORBIC ACID
  3. LOVENOX [Concomitant]
     Active Substance: ENOXAPARIN SODIUM
  4. XEROQUEL [Suspect]
     Active Substance: QUETIAPINE FUMARATE
     Route: 048
     Dates: start: 20150128, end: 20150128
  5. PRINCI B [Concomitant]
     Active Substance: PYRIDOXINE\THIAMINE
  6. ZOLMITRIPTAN. [Suspect]
     Active Substance: ZOLMITRIPTAN
     Route: 048
     Dates: start: 20150128, end: 20150128
  7. ESCITALOPRAM [Suspect]
     Active Substance: ESCITALOPRAM OXALATE
     Route: 048
     Dates: start: 20150128, end: 20150128
  8. ZYBAN [Concomitant]
     Active Substance: BUPROPION HYDROCHLORIDE
  9. ESPERAL [Suspect]
     Active Substance: DISULFIRAM
     Route: 048
     Dates: start: 20150128, end: 20150128
  10. ATARAX [Concomitant]
     Active Substance: HYDROXYZINE\HYDROXYZINE HYDROCHLORIDE
  11. DECAN [Concomitant]
     Active Substance: ZINC GLUCONATE

REACTIONS (4)
  - Status epilepticus [Recovered/Resolved]
  - Coma [Recovered/Resolved]
  - Shock [Recovered/Resolved]
  - Electrocardiogram QRS complex prolonged [Recovered/Resolved]

NARRATIVE: CASE EVENT DATE: 20150128
